FAERS Safety Report 5300264-6 (Version None)
Quarter: 2007Q2

REPORT INFORMATION
  Report Type: 
  Country: None (occurrence: None)
  Receive Date: 20070418
  Receipt Date: 20070410
  Transmission Date: 20071010
  Serious: Yes (Hospitalization)
  Sender: FDA-Public Use
  Company Number: DEWYE412411APR07

PATIENT
  Sex: Female
  Weight: 50 kg

DRUGS (6)
  1. LORAZEPAM [Suspect]
     Dosage: 2 TABLETS (OVERDOSE AMOUNT 2 MG)
     Route: 048
     Dates: start: 20070410, end: 20070410
  2. RISPERDAL [Suspect]
     Dosage: 1 TABLET (OVERDOSE AMOUNT UNKNOWN)
     Route: 048
     Dates: start: 20070410, end: 20070410
  3. PANTOZOL [Suspect]
     Dosage: 1 TABLET (OVERDOSE AMOUNT 40 MG)
     Route: 048
     Dates: start: 20070410, end: 20070410
  4. ALCOHOL [Suspect]
     Dosage: HALF A BOTTLE OF LIQUEUR
     Route: 048
     Dates: start: 20070410, end: 20070410
  5. CIPRALEX [Suspect]
     Dosage: 1 TABLET (OVERDOSE AMOUNT 10 MG )
     Route: 048
     Dates: start: 20070410, end: 20070410
  6. CLONIDINE [Suspect]
     Dosage: 3 TABLETS (OVERDOSE AMOUNT 0,225 MG)
     Route: 048
     Dates: start: 20070410, end: 20070410

REACTIONS (2)
  - FEELING DRUNK [None]
  - INTENTIONAL OVERDOSE [None]
